FAERS Safety Report 7224866-5 (Version None)
Quarter: 2011Q1

REPORT INFORMATION
  Report Type: 
  Country: None (occurrence: None)
  Receive Date: 20110104
  Receipt Date: 20101223
  Transmission Date: 20110831
  Serious: Yes (Hospitalization)
  Sender: FDA-Public Use
  Company Number: 2010-4424

PATIENT
  Age: 76 Year
  Sex: Female

DRUGS (9)
  1. SOMATULINE DEPOT [Suspect]
  2. NEXIUM [Concomitant]
  3. SOMATULINE DEPOT [Suspect]
  4. ACETAMINOPHEN [Concomitant]
  5. FLUVOXAMINE MALEATE [Concomitant]
  6. LOSARTAN POTASSIUM [Concomitant]
  7. SOMATULINE DEPOT [Suspect]
     Indication: CARCINOID TUMOUR
     Dosage: 90MG (90 MG, 1 IN 28 D), INTRAMUSCULAR
     Route: 030
     Dates: start: 20101026
  8. BISOPROLOL (BISOPROLOL) [Concomitant]
  9. SOMVASTATINE (SIMVASTATIN) [Concomitant]

REACTIONS (3)
  - MALAISE [None]
  - CONDITION AGGRAVATED [None]
  - BONE PAIN [None]
